FAERS Safety Report 7970378-0 (Version None)
Quarter: 2011Q4

REPORT INFORMATION
  Report Type: 
  Country: None (occurrence: None)
  Receive Date: 20111212
  Receipt Date: 20111128
  Transmission Date: 20120403
  Serious: Yes (Other)
  Sender: FDA-Public Use
  Company Number: PHFR2011GB006823

PATIENT
  Sex: Male

DRUGS (2)
  1. DIOVAN [Suspect]
     Indication: MYOCARDIAL INFARCTION
     Dosage: 80 MG,
  2. VALSARTAN [Suspect]

REACTIONS (3)
  - DRUG DISPENSING ERROR [None]
  - PALPITATIONS [None]
  - MYOCARDIAL INFARCTION [None]
